FAERS Safety Report 7888847 (Version 10)
Quarter: 2013Q3

REPORT INFORMATION
  Report Type: Report from Study
  Country: US (occurrence: US)
  Receive Date: 20110407
  Receipt Date: 20130813
  Transmission Date: 20140515
  Serious: Yes (Hospitalization, Other)
  Sender: FDA-Public Use
  Company Number: US-BRISTOL-MYERS SQUIBB COMPANY-15647365

PATIENT
  Age: 43 Year
  Sex: Male

DRUGS (6)
  1. IPILIMUMAB [Suspect]
     Indication: MALIGNANT MELANOMA
     Dosage: 28FEB2011.
     Route: 042
     Dates: start: 20110228, end: 20110405
  2. BENICAR [Concomitant]
     Dates: start: 20080715
  3. CLARITIN [Concomitant]
     Dates: start: 20080715
  4. ZYVOX [Concomitant]
     Dates: start: 20110417, end: 20110426
  5. IMIPENEM [Concomitant]
     Route: 042
     Dates: start: 20110417, end: 20110424
  6. FLUCONAZOLE [Concomitant]
     Route: 042
     Dates: start: 20110417, end: 20110422

REACTIONS (4)
  - Intestinal perforation [Recovered/Resolved with Sequelae]
  - Colitis [Recovered/Resolved]
  - Hypotension [Recovered/Resolved]
  - Wound infection [Recovered/Resolved]
